FAERS Safety Report 4569097-2 (Version None)
Quarter: 2005Q1

REPORT INFORMATION
  Report Type: 
  Country: None (occurrence: None)
  Receive Date: 20050203
  Receipt Date: 20041214
  Transmission Date: 20050727
  Serious: Yes (Death)
  Sender: FDA-Public Use
  Company Number: US-BRISTOL-MYERS SQUIBB COMPANY-12795886

PATIENT
  Age: 46 Year
  Sex: Male

DRUGS (2)
  1. MEGACE [Suspect]
     Indication: ANOREXIA
     Route: 048
  2. MEGACE [Suspect]
     Indication: WEIGHT DECREASED
     Route: 048

REACTIONS (2)
  - MALIGNANT NEOPLASM PROGRESSION [None]
  - METASTATIC RENAL CELL CARCINOMA [None]
